FAERS Safety Report 5892787-6 (Version None)
Quarter: 2008Q3

REPORT INFORMATION
  Report Type: 
  Country: None (occurrence: None)
  Receive Date: 20080923
  Receipt Date: 20080909
  Transmission Date: 20090109
  Serious: Yes (Other)
  Sender: FDA-Public Use
  Company Number: US-AMGEN-US308573

PATIENT
  Age: 58 Year
  Sex: Female
  Weight: 51.3 kg

DRUGS (2)
  1. ENBREL [Suspect]
     Indication: RHEUMATOID ARTHRITIS
     Dosage: UNKNOWN
     Route: 058
     Dates: start: 19981103, end: 19981114
  2. PREDNISONE TAB [Concomitant]

REACTIONS (1)
  - VASCULITIS NECROTISING [None]
